FAERS Safety Report 7227730-0 (Version None)
Quarter: 2011Q1

REPORT INFORMATION
  Report Type: 
  Country: None (occurrence: None)
  Receive Date: 20110114
  Receipt Date: 20110113
  Transmission Date: 20110831
  Serious: No
  Sender: FDA-Public Use
  Company Number: US-PFIZER INC-US-WYE-H16799510

PATIENT
  Sex: Female
  Weight: 63.5 kg

DRUGS (16)
  1. PRISTIQ [Suspect]
     Dosage: STARTED TO WEAN BY TAKING 1/2 50 MG TABLET
     Route: 048
     Dates: start: 20100805
  2. CALCIUM [Concomitant]
  3. FISH OIL, HYDROGENATED [Concomitant]
  4. NAMENDA [Concomitant]
  5. LIPITOR [Suspect]
     Dosage: 5 MG, 1X/DAY
     Route: 048
  6. LANOXIN [Concomitant]
  7. PROVENTIL /OLD FORM/ [Concomitant]
  8. PRISTIQ [Suspect]
     Indication: DEPRESSION
     Dosage: 50 MG, 1X/DAY
     Route: 048
     Dates: start: 20100101, end: 20100804
  9. BENICAR HCT [Concomitant]
  10. FUROSEMIDE [Concomitant]
  11. POTASSIUM [Concomitant]
  12. COUMADIN [Concomitant]
  13. VITAMIN D [Concomitant]
  14. EVISTA [Concomitant]
  15. ADVAIR [Concomitant]
  16. LEVOTHYROXINE [Concomitant]

REACTIONS (5)
  - WRONG TECHNIQUE IN DRUG USAGE PROCESS [None]
  - HEADACHE [None]
  - DRUG WITHDRAWAL SYNDROME [None]
  - UNEVALUABLE EVENT [None]
  - INSOMNIA [None]
